FAERS Safety Report 10691895 (Version 2)
Quarter: 2015Q1

REPORT INFORMATION
  Report Type: Report from Study
  Country: FR (occurrence: FR)
  Receive Date: 20150105
  Receipt Date: 20150108
  Transmission Date: 20150720
  Serious: Yes (Hospitalization, Other)
  Sender: FDA-Public Use
  Company Number: FR-ACTELION-A-US2014-110503

PATIENT
  Age: 61 Year
  Sex: Female
  Weight: 60 kg

DRUGS (8)
  1. FOSAVANCE [Concomitant]
     Active Substance: ALENDRONATE SODIUM\CHOLECALCIFEROL
     Dosage: 62 MG, QD
     Route: 048
     Dates: start: 20131001
  2. SPIRONOLACTONE. [Concomitant]
     Active Substance: SPIRONOLACTONE
     Dosage: 25 MG, QD
     Route: 048
     Dates: start: 19990219
  3. LOPERAMIDE [Concomitant]
     Active Substance: LOPERAMIDE
     Dosage: 2 MG, QD
     Route: 048
     Dates: start: 20050929
  4. FIXICAL [Concomitant]
     Active Substance: CALCIUM CARBONATE
     Dosage: 1000 MG, QD
     Route: 048
     Dates: start: 20131001
  5. EPOPROSTENOL SODIUM. [Suspect]
     Active Substance: EPOPROSTENOL SODIUM
     Indication: PULMONARY ARTERIAL HYPERTENSION
     Dosage: 33 NG/KG, PER MIN
     Route: 042
     Dates: start: 20110802
  6. SILDENAFIL. [Concomitant]
     Active Substance: SILDENAFIL
     Dosage: 240 MG, QD
     Route: 048
     Dates: start: 20060119
  7. HYDROXYZINE [Concomitant]
     Active Substance: HYDROXYZINE\HYDROXYZINE HYDROCHLORIDE
     Dosage: 150 MG, QD
     Route: 048
     Dates: start: 19990219
  8. FLUINDIONE [Concomitant]
     Active Substance: FLUINDIONE
     Dosage: 15 MG, QD
     Route: 048
     Dates: start: 19990219

REACTIONS (3)
  - Atrial flutter [Not Recovered/Not Resolved]
  - Right ventricular failure [Unknown]
  - Dyspnoea [Unknown]

NARRATIVE: CASE EVENT DATE: 20141229
